FAERS Safety Report 18503724 (Version 2)
Quarter: 2020Q4

REPORT INFORMATION
  Report Type: Spontaneous
  Country: US (occurrence: US)
  Receive Date: 20201113
  Receipt Date: 20201204
  Transmission Date: 20210114
  Serious: Yes (Death)
  Sender: FDA-Public Use
  Company Number: US-ASTRAZENECA-2020SF49090

PATIENT
  Sex: Male
  Weight: 54.4 kg

DRUGS (1)
  1. SYMBICORT [Suspect]
     Active Substance: BUDESONIDE\FORMOTEROL FUMARATE DIHYDRATE
     Indication: CHRONIC OBSTRUCTIVE PULMONARY DISEASE
     Dosage: 160/4.5 MCG, UNKNOWN UNKNOWN
     Route: 055

REACTIONS (6)
  - Acute respiratory failure [Fatal]
  - Decreased activity [Unknown]
  - Cardiac arrest [Fatal]
  - Intentional dose omission [Unknown]
  - Chest discomfort [Recovering/Resolving]
  - Off label use [Unknown]
